FAERS Safety Report 7061744-9 (Version None)
Quarter: 2010Q4

REPORT INFORMATION
  Report Type: 
  Country: None (occurrence: None)
  Receive Date: 20101026
  Receipt Date: 20101018
  Transmission Date: 20110411
  Serious: Yes (Death, Other)
  Sender: FDA-Public Use
  Company Number: SA-ROCHE-734281

PATIENT

DRUGS (5)
  1. TRETINOIN [Suspect]
     Dosage: INDUCTION:SINCE D1,AFTER MEALS OR WITH MILK, IN DIVIDED 12 HR DOSES,ROUNDED OFF TO NEAREST 10 MG
     Route: 065
  2. TRETINOIN [Suspect]
     Dosage: FOR 2 WEEKS,24 H AFTER IDARUBICIN DOSE WITH EACH 4 WEEK POST-REMISSION CYCLE FOR A TOTAL OF 6 CYCLE.
     Route: 065
  3. IDARUBICIN HCL [Suspect]
     Dosage: INDUCTION:ON DAY 3, 5, 7, 9
     Route: 042
  4. IDARUBICIN HCL [Suspect]
     Dosage: POST-REMISSION:SINGLE DOSE,EVERY 4 WEEKS (NO LATER THAN 6 WEEKS) FOR A TOTAL OF 6 CYCLES
     Route: 042
  5. DEXAMETHASONE [Concomitant]
     Indication: PROPHYLAXIS

REACTIONS (3)
  - ACUTE PROMYELOCYTIC LEUKAEMIA [None]
  - HAEMORRHAGE [None]
  - RETINOIC ACID SYNDROME [None]
